FAERS Safety Report 22033103 (Version 1)
Quarter: 2023Q1

REPORT INFORMATION
  Report Type: Spontaneous
  Country: GB (occurrence: GB)
  Receive Date: 20230224
  Receipt Date: 20230224
  Transmission Date: 20230418
  Serious: Yes (Other)
  Sender: FDA-Public Use
  Company Number: None

PATIENT
  Age: 62 Year
  Sex: Female

DRUGS (1)
  1. RISPERIDONE [Suspect]
     Active Substance: RISPERIDONE
     Indication: Agitation
     Dosage: 0.5MG ; ;
     Route: 065
     Dates: start: 20220912, end: 20230201

REACTIONS (5)
  - Kyphosis [Not Recovered/Not Resolved]
  - Posture abnormal [Unknown]
  - Agitation [Unknown]
  - Pain [Unknown]
  - Restlessness [Unknown]

NARRATIVE: CASE EVENT DATE: 20221205
